FAERS Safety Report 5262401-1 (Version None)
Quarter: 2007Q1

REPORT INFORMATION
  Report Type: 
  Country: None (occurrence: None)
  Receive Date: 20070309
  Receipt Date: 20070309
  Transmission Date: 20070707
  Serious: No
  Sender: FDA-Public Use
  Company Number: None

PATIENT
  Age: 63 Year
  Sex: Female
  Weight: 80 kg

DRUGS (1)
  1. DEPAKOTE ER [Suspect]
     Dosage: 500 MG DAILY PO
     Route: 048

REACTIONS (1)
  - WEIGHT INCREASED [None]
